FAERS Safety Report 19595919 (Version 1)
Quarter: 2021Q3

REPORT INFORMATION
  Report Type: Other
  Country: CN (occurrence: CN)
  Receive Date: 20210722
  Receipt Date: 20210722
  Transmission Date: 20211014
  Serious: Yes (Other)
  Sender: FDA-Public Use
  Company Number: CN-ROCHE-2872536

PATIENT
  Age: 52 Month
  Sex: Male

DRUGS (9)
  1. DEXAMETHASONE. [Suspect]
     Active Substance: DEXAMETHASONE
     Indication: FOLLICULAR LYMPHOMA
     Route: 065
     Dates: start: 2017
  2. RITUXIMAB. [Suspect]
     Active Substance: RITUXIMAB
     Indication: FOLLICULAR LYMPHOMA
     Dosage: FOR A TOTAL CYCLE OF 4?6 TIMES.
     Route: 041
     Dates: start: 2017
  3. METHOTREXATE. [Suspect]
     Active Substance: METHOTREXATE
     Indication: FOLLICULAR LYMPHOMA
     Route: 065
     Dates: start: 2017
  4. VINCRISTINE [Suspect]
     Active Substance: VINCRISTINE
     Indication: FOLLICULAR LYMPHOMA
     Route: 065
     Dates: start: 2017
  5. CYCLOPHOSPHAMIDE. [Suspect]
     Active Substance: CYCLOPHOSPHAMIDE
     Indication: FOLLICULAR LYMPHOMA
     Route: 065
     Dates: start: 2017
  6. CYTARABINE. [Suspect]
     Active Substance: CYTARABINE
     Indication: FOLLICULAR LYMPHOMA
     Route: 065
     Dates: start: 2017
  7. ETOPOSIDE. [Suspect]
     Active Substance: ETOPOSIDE
     Indication: FOLLICULAR LYMPHOMA
     Route: 065
     Dates: start: 2017
  8. DAUNORUBICIN [Suspect]
     Active Substance: DAUNORUBICIN
     Indication: FOLLICULAR LYMPHOMA
     Route: 065
     Dates: start: 2017
  9. PREDNISONE. [Suspect]
     Active Substance: PREDNISONE
     Indication: FOLLICULAR LYMPHOMA
     Route: 065
     Dates: start: 2017

REACTIONS (2)
  - Myelosuppression [Recovered/Resolved]
  - Cardiomyopathy [Recovered/Resolved]
